FAERS Safety Report 12408888 (Version 1)
Quarter: 2016Q2

REPORT INFORMATION
  Report Type: Spontaneous
  Country: PR (occurrence: US)
  Receive Date: 20160526
  Receipt Date: 20160526
  Transmission Date: 20160815
  Serious: Yes (Other)
  Sender: FDA-Public Use
  Company Number: US-THE MENTHOLATUM COMPANY-1052872

PATIENT
  Age: 47 Year
  Sex: Male
  Weight: 136.36 kg

DRUGS (1)
  1. WALGREENS MUSCLE RUB ULRA STRENGTH [Suspect]
     Active Substance: CAMPHOR (SYNTHETIC)\MENTHOL\METHYL SALICYLATE
     Indication: MUSCULOSKELETAL PAIN
     Route: 061
     Dates: start: 20160406, end: 20160406

REACTIONS (1)
  - Thermal burn [Unknown]

NARRATIVE: CASE EVENT DATE: 20160406
